FAERS Safety Report 22142155 (Version 1)
Quarter: 2023Q1

REPORT INFORMATION
  Report Type: Report from Study
  Country: US (occurrence: None)
  Receive Date: 20230327
  Receipt Date: 20230327
  Transmission Date: 20230418
  Serious: Yes (Other)
  Sender: FDA-Public Use
  Company Number: 2023A067079

PATIENT
  Sex: Male
  Weight: 103.4 kg

DRUGS (1)
  1. CALQUENCE [Suspect]
     Active Substance: ACALABRUTINIB
     Indication: Chronic leukaemia
     Route: 048
     Dates: end: 20230310

REACTIONS (1)
  - Immune thrombocytopenia [Unknown]
